FAERS Safety Report 25224489 (Version 2)
Quarter: 2025Q2

REPORT INFORMATION
  Report Type: Spontaneous
  Country: US (occurrence: US)
  Receive Date: 20250422
  Receipt Date: 20250429
  Transmission Date: 20250717
  Serious: No
  Sender: AMGEN
  Company Number: US-AMGEN-USASP2025078668

PATIENT
  Age: 66 Year
  Sex: Female

DRUGS (3)
  1. EVENITY [Suspect]
     Active Substance: ROMOSOZUMAB-AQQG
     Indication: Osteoporosis postmenopausal
     Dosage: UNK, QMO
     Route: 065
  2. LISTERINE ORIGINAL [Concomitant]
     Active Substance: EUCALYPTOL\MENTHOL\METHYL SALICYLATE\THYMOL
     Indication: Product used for unknown indication
     Route: 065
  3. ELIQUIS [Concomitant]
     Active Substance: APIXABAN

REACTIONS (4)
  - Mitral valve disease [Unknown]
  - Tooth extraction [Unknown]
  - Mouth ulceration [Recovered/Resolved]
  - Dental care [Unknown]

NARRATIVE: CASE EVENT DATE: 20241001
